FAERS Safety Report 18960409 (Version 1)
Quarter: 2021Q1

REPORT INFORMATION
  Report Type: Spontaneous
  Country: US (occurrence: US)
  Receive Date: 20210303
  Receipt Date: 20210303
  Transmission Date: 20210420
  Serious: Yes (Death)
  Sender: FDA-Public Use
  Company Number: US-ROCHE-2781999

PATIENT
  Sex: Male

DRUGS (25)
  1. LOPERAMIDE [Concomitant]
     Active Substance: LOPERAMIDE
  2. MORPHINE SULPHATE [Concomitant]
     Active Substance: MORPHINE SULFATE
  3. BUDESONIDE. [Concomitant]
     Active Substance: BUDESONIDE
  4. HALOPERIDOL. [Concomitant]
     Active Substance: HALOPERIDOL
  5. HYOSCYAMINE. [Concomitant]
     Active Substance: HYOSCYAMINE
  6. IPRATROPIUM/ALBUTEROL [Concomitant]
     Active Substance: ALBUTEROL\IPRATROPIUM
  7. MAGNESIUM OXIDE. [Concomitant]
     Active Substance: MAGNESIUM OXIDE
  8. TEMAZEPAM. [Concomitant]
     Active Substance: TEMAZEPAM
  9. BISACODYL. [Concomitant]
     Active Substance: BISACODYL
  10. METOPROLOL SUCCINATE. [Concomitant]
     Active Substance: METOPROLOL SUCCINATE
  11. ALPRAZOLAM. [Concomitant]
     Active Substance: ALPRAZOLAM
  12. DOXYCYCLINE HYDROCHLORIDE [Concomitant]
     Active Substance: DOXYCYCLINE HYDROCHLORIDE
  13. HYDROCHLOROTHIAZIDE. [Concomitant]
     Active Substance: HYDROCHLOROTHIAZIDE
  14. LEVOTHYROXIN [Concomitant]
     Active Substance: LEVOTHYROXINE
  15. LORAZEPAM. [Concomitant]
     Active Substance: LORAZEPAM
  16. FUROSEMIDE. [Concomitant]
     Active Substance: FUROSEMIDE
  17. POTASSIUM CHLORIDE ER [Concomitant]
     Active Substance: POTASSIUM CHLORIDE
  18. SERTRALINE [Concomitant]
     Active Substance: SERTRALINE HYDROCHLORIDE
  19. AMLODIPINE [Concomitant]
     Active Substance: AMLODIPINE BESYLATE
  20. BUPROPION. [Concomitant]
     Active Substance: BUPROPION
  21. PREDNISONE. [Concomitant]
     Active Substance: PREDNISONE
  22. SILDENAFIL. [Concomitant]
     Active Substance: SILDENAFIL
  23. ESBRIET [Suspect]
     Active Substance: PIRFENIDONE
     Indication: IDIOPATHIC PULMONARY FIBROSIS
     Dosage: 3 CAPSULES
     Route: 048
     Dates: start: 20190411
  24. ACETAMIN [Concomitant]
     Active Substance: ACETAMINOPHEN
  25. PROCHLORPERAZINE. [Concomitant]
     Active Substance: PROCHLORPERAZINE

REACTIONS (1)
  - Death [Fatal]
